FAERS Safety Report 20505136 (Version 2)
Quarter: 2022Q2

REPORT INFORMATION
  Report Type: Report from Study
  Country: CO (occurrence: CO)
  Receive Date: 20220223
  Receipt Date: 20220418
  Transmission Date: 20220720
  Serious: Yes (Death, Life-Threatening, Hospitalization)
  Sender: FDA-Public Use
  Company Number: CO-SA-SAC20220218000682

PATIENT
  Age: 90 Year
  Sex: Male

DRUGS (3)
  1. PRALUENT [Suspect]
     Active Substance: ALIROCUMAB
     Indication: Acute myocardial infarction
     Dosage: 75 MG, QOW
     Route: 058
     Dates: start: 20180409, end: 202201
  2. PRALUENT [Suspect]
     Active Substance: ALIROCUMAB
     Indication: Hypercholesterolaemia
  3. PRALUENT [Suspect]
     Active Substance: ALIROCUMAB
     Indication: Coronary artery disease

REACTIONS (5)
  - Pneumonia [Fatal]
  - Cough [Fatal]
  - Oxygen saturation decreased [Fatal]
  - Blood gases abnormal [Fatal]
  - COVID-19 [Unknown]

NARRATIVE: CASE EVENT DATE: 20220124
